FAERS Safety Report 7465398-9 (Version None)
Quarter: 2011Q1

REPORT INFORMATION
  Report Type: 
  Country: None (occurrence: None)
  Receive Date: 20110302
  Receipt Date: 20101026
  Transmission Date: 20110831
  Serious: Yes (Hospitalization, Other)
  Sender: FDA-Public Use
  Company Number: 163-21880-10072412

PATIENT
  Age: 83 Year
  Sex: Male

DRUGS (13)
  1. GLIPIZIDE [Concomitant]
  2. VALPROIC ACID [Concomitant]
  3. CEFTIN (CEFUROXINE AXETIL) [Concomitant]
  4. COUMADIN [Concomitant]
  5. LOVENOX [Concomitant]
  6. DILTIAZEM [Concomitant]
  7. METFORMIN (METFORMIN) [Concomitant]
  8. FIBERCON (POLYCARBOPHIL CALCIUM) [Concomitant]
  9. LEVOTHYROXINE SODIUM [Concomitant]
  10. PAXIL [Concomitant]
  11. REVLIMID [Suspect]
     Indication: MULTIPLE MYELOMA
     Dosage: 25 MG, DAILY FOR 21 DAYS, PO
     Route: 048
     Dates: start: 20100625
  12. DILANTIN [Suspect]
     Indication: CONVULSION
     Dates: start: 20100701
  13. TRILEPTAL [Concomitant]

REACTIONS (10)
  - CONVULSION [None]
  - HYPERCALCAEMIA [None]
  - HAEMATURIA [None]
  - ISCHAEMIC STROKE [None]
  - ATRIAL FIBRILLATION [None]
  - MENTAL STATUS CHANGES [None]
  - SYNCOPE [None]
  - PSEUDOMONAL SEPSIS [None]
  - HYPOKALAEMIA [None]
  - RASH [None]
